FAERS Safety Report 6773076-4 (Version None)
Quarter: 2010Q2

REPORT INFORMATION
  Report Type: 
  Country: None (occurrence: None)
  Receive Date: 20100616
  Receipt Date: 20100607
  Transmission Date: 20101027
  Serious: Yes (Other)
  Sender: FDA-Public Use
  Company Number: US-PFIZER INC-2010056053

PATIENT
  Sex: Male

DRUGS (1)
  1. NARDIL [Suspect]

REACTIONS (7)
  - ANXIETY [None]
  - CHEST DISCOMFORT [None]
  - CONSTIPATION [None]
  - HYPERTENSION [None]
  - INCREASED APPETITE [None]
  - NOCTURIA [None]
  - WEIGHT DECREASED [None]
